FAERS Safety Report 9308236 (Version 4)
Quarter: 2014Q3

REPORT INFORMATION
  Report Type: Spontaneous
  Country: DK (occurrence: DK)
  Receive Date: 20130524
  Receipt Date: 20140714
  Transmission Date: 20150326
  Serious: Yes (Other)
  Sender: FDA-Public Use
  Company Number: DK-PFIZER INC-2013158765

PATIENT
  Age: 37 Year
  Sex: Female
  Weight: 61 kg

DRUGS (1)
  1. MISOPROSTOL. [Suspect]
     Active Substance: MISOPROSTOL
     Indication: LABOUR INDUCTION
     Dosage: 50 UG, SINGLE
     Route: 048
     Dates: start: 20121206, end: 20121206

REACTIONS (8)
  - Hyperhidrosis [Recovering/Resolving]
  - Palpitations [Recovering/Resolving]
  - Insomnia [Recovering/Resolving]
  - Precipitate labour [Recovered/Resolved]
  - Anxiety [Recovering/Resolving]
  - Off label use [Recovered/Resolved]
  - Postpartum haemorrhage [Recovered/Resolved]
  - Postpartum stress disorder [Recovering/Resolving]

NARRATIVE: CASE EVENT DATE: 20121206
